FAERS Safety Report 10953131 (Version 1)
Quarter: 2015Q1

REPORT INFORMATION
  Report Type: Spontaneous
  Country: US (occurrence: None)
  Receive Date: 20150323
  Receipt Date: 20150323
  Transmission Date: 20150721
  Serious: Yes (Hospitalization, Other)
  Sender: FDA-Public Use
  Company Number: US-H14001-15-00440

PATIENT
  Age: 57 Year
  Sex: Male

DRUGS (4)
  1. HYDROCHLOROTHIAZIDE (HYDROCHLOROTHIAZIDE) UNKNOWN [Suspect]
     Active Substance: HYDROCHLOROTHIAZIDE
     Indication: HYPERTENSION
  2. TACROLIMUS (TACROLIMUS) (UNKNOWN) (TACROLIMUS) [Suspect]
     Active Substance: TACROLIMUS
     Indication: PRODUCT USED FOR UNKNOWN INDICATION
     Dosage: 2 MG (1 MG,2 IN 1 D)
  3. LITHIUM CARBONATE (LITHIUM CARBONATE) UNKNOWN [Suspect]
     Active Substance: LITHIUM CARBONATE
     Indication: PRODUCT USED FOR UNKNOWN INDICATION
     Dosage: 600 MG IN THE MORNING, 300 MG IN THE EVENING
  4. OLANZAPINE. [Concomitant]
     Active Substance: OLANZAPINE

REACTIONS (19)
  - Blood thyroid stimulating hormone increased [None]
  - Nervous system disorder [None]
  - Cognitive disorder [None]
  - Depression [None]
  - Hypomania [None]
  - Illusion [None]
  - Nephropathy toxic [None]
  - Lethargy [None]
  - Muscle contractions involuntary [None]
  - Mental status changes [None]
  - Tremor [None]
  - Hallucination [None]
  - Toxicity to various agents [None]
  - Decreased appetite [None]
  - Memory impairment [None]
  - Extrapyramidal disorder [None]
  - Hypersomnia [None]
  - Disturbance in attention [None]
  - Brain stem syndrome [None]
